FAERS Safety Report 5227289-3 (Version None)
Quarter: 2007Q1

REPORT INFORMATION
  Report Type: 
  Country: None (occurrence: None)
  Receive Date: 20070130
  Receipt Date: 20070127
  Transmission Date: 20070707
  Serious: Yes (Other)
  Sender: FDA-Public Use
  Company Number: 232447

PATIENT
  Age: 13 Year
  Sex: Male

DRUGS (5)
  1. NUTROPIN AQ [Suspect]
     Indication: UNEVALUABLE EVENT
     Dosage: 2.6 MG, 7/WEEK, SUBCUTANEOUS
     Route: 058
     Dates: start: 20030825
  2. ALBUTEROL (ALBUTEROL/ALBUTEROL/SULFATE) [Concomitant]
  3. FLONASE [Concomitant]
  4. FLOVENT [Concomitant]
  5. CONCOMITANT DRUG (GENERIC COMPONENT(S) NOT KNOWN) [Concomitant]

REACTIONS (1)
  - DIABETES MELLITUS [None]
